FAERS Safety Report 8402941-7 (Version None)
Quarter: 2012Q2

REPORT INFORMATION
  Report Type: 
  Country: None (occurrence: None)
  Receive Date: 20120601
  Receipt Date: 20120524
  Transmission Date: 20120825
  Serious: Yes (Congenital Anomaly)
  Sender: FDA-Public Use
  Company Number: US-GLAXOSMITHKLINE-A0979659A

PATIENT
  Sex: Male

DRUGS (2)
  1. MACROBID [Concomitant]
     Route: 064
  2. PAXIL [Suspect]
     Indication: DEPRESSION
     Dosage: 20MG AT NIGHT
     Route: 064

REACTIONS (6)
  - CRYPTORCHISM [None]
  - FOETAL EXPOSURE DURING PREGNANCY [None]
  - FOETAL GROWTH RESTRICTION [None]
  - MOTOR DEVELOPMENTAL DELAY [None]
  - PREMATURE BABY [None]
  - SPEECH DISORDER DEVELOPMENTAL [None]
